FAERS Safety Report 24225416 (Version 1)
Quarter: 2024Q3

REPORT INFORMATION
  Report Type: Spontaneous
  Country: CN (occurrence: CN)
  Receive Date: 20240820
  Receipt Date: 20240820
  Transmission Date: 20241017
  Serious: Yes (Other)
  Sender: NOVO NORDISK
  Company Number: None

PATIENT
  Age: 53 Year
  Sex: Female
  Weight: 46 kg

DRUGS (1)
  1. NOVORAPID [Suspect]
     Active Substance: INSULIN ASPART
     Indication: Type 2 diabetes mellitus
     Dosage: 6 IU, QD
     Route: 058
     Dates: start: 20240804

REACTIONS (1)
  - Hypoaesthesia [Recovering/Resolving]

NARRATIVE: CASE EVENT DATE: 20240804
